FAERS Safety Report 9100304 (Version 1)
Quarter: 2013Q1

REPORT INFORMATION
  Report Type: Spontaneous
  Country: TW (occurrence: TW)
  Receive Date: 20130214
  Receipt Date: 20130214
  Transmission Date: 20140127
  Serious: Yes (Death, Hospitalization)
  Sender: FDA-Public Use
  Company Number: TW-RANBAXY-2013R1-65178

PATIENT
  Age: 44 Year
  Sex: Female

DRUGS (1)
  1. ACETAMINOPHEN [Suspect]
     Indication: PRODUCT USED FOR UNKNOWN INDICATION
     Dosage: UNK
     Route: 048

REACTIONS (13)
  - Pancytopenia [Unknown]
  - Hyperglycaemia [Recovering/Resolving]
  - Shock [Recovering/Resolving]
  - Coma [Recovering/Resolving]
  - Rhabdomyolysis [Recovering/Resolving]
  - Pancreatitis [Unknown]
  - Toxicity to various agents [Unknown]
  - Overdose [Unknown]
  - Hypothermia [Recovering/Resolving]
  - Metabolic acidosis [Recovering/Resolving]
  - Hepatorenal failure [Unknown]
  - Suicide attempt [Unknown]
  - Death [Fatal]
